FAERS Safety Report 9466442 (Version 2)
Quarter: 2013Q3

REPORT INFORMATION
  Report Type: Report from Study
  Country: US (occurrence: US)
  Receive Date: 20130820
  Receipt Date: 20130820
  Transmission Date: 20140515
  Serious: Yes (Hospitalization)
  Sender: FDA-Public Use
  Company Number: US-ABBOTT-13P-163-1112465-00

PATIENT
  Sex: Female
  Weight: 79.45 kg

DRUGS (12)
  1. HUMIRA [Suspect]
     Indication: RHEUMATOID ARTHRITIS
     Route: 058
     Dates: start: 200803, end: 201106
  2. ENJUVIA [Concomitant]
     Dosage: SLOWLY TAPERED OFF(AS DIRECTED)
  3. ORENCIA [Concomitant]
     Route: 058
     Dates: start: 201201
  4. CELEBREX [Concomitant]
     Dosage: SLOWLY TAPERED OFF
     Route: 048
  5. DIASTOLIC [Concomitant]
     Dosage: SLOWLY TAPERED OFF
  6. ULTRAM [Concomitant]
     Dosage: 2 TABLETS TID DAILY
     Route: 048
  7. LEVOTHYROXINE SODIUM [Concomitant]
     Dosage: 1 TABLET DAILY
     Route: 048
  8. BYSTOLIC [Concomitant]
     Route: 048
  9. FOLIC ACID [Concomitant]
     Dosage: 1 TABLET DAILY
     Route: 048
  10. LIDODERM [Concomitant]
     Dosage: 5% PATCH 12 HRS ON/12 HRS OFF
     Route: 062
  11. CETRIRIZINE HYDROCHLORIDE [Concomitant]
     Indication: SEASONAL ALLERGY
     Dosage: ALL DAY TABLETS/1 TABLET DAILY
  12. COMPRESSION STOCKING BILATERAL KNEE HIGH MEDIUM COMPRESSION [Concomitant]
     Indication: OEDEMA

REACTIONS (20)
  - Oedema peripheral [Recovered/Resolved]
  - Hyperhidrosis [Unknown]
  - Palpitations [Unknown]
  - Myalgia [Unknown]
  - Fatigue [Unknown]
  - Arthralgia [Unknown]
  - Arthralgia [Unknown]
  - Joint swelling [Unknown]
  - Joint swelling [Unknown]
  - Myofascial pain syndrome [Unknown]
  - Mood swings [Unknown]
  - Lymphadenopathy [Unknown]
  - Aphthous stomatitis [Unknown]
  - Livedo reticularis [Unknown]
  - Arthralgia [Unknown]
  - Mobility decreased [Unknown]
  - Arteriosclerosis coronary artery [Unknown]
  - Osteoarthritis [Unknown]
  - Amnesia [Unknown]
  - Postmenopause [Unknown]
